FAERS Safety Report 7182031-4 (Version None)
Quarter: 2010Q4

REPORT INFORMATION
  Report Type: 
  Country: None (occurrence: None)
  Receive Date: 20101221
  Receipt Date: 20100505
  Transmission Date: 20110411
  Serious: No
  Sender: FDA-Public Use
  Company Number: US-AMGEN-KDL410440

PATIENT

DRUGS (12)
  1. ENBREL [Suspect]
     Indication: PRODUCT USED FOR UNKNOWN INDICATION
     Dosage: 50 MG, QWK
     Route: 030
  2. LORSARTAN POTASSIUM HYDROCHLORIDE [Concomitant]
     Dosage: UNK UNK, UNK
  3. SULFASALAZINE [Concomitant]
     Dosage: 500 MG, UNK
  4. METHOTREXATE [Concomitant]
     Dosage: 2.5 MG, UNK
  5. PREDNISONE [Concomitant]
     Dosage: 1 MG, UNK
  6. FEXOFENADINE HCL [Concomitant]
     Dosage: 30 MG, UNK
  7. FLUTICASONE PROPIONATE [Concomitant]
     Dosage: .05 %, UNK
  8. TOCOPHEROL CONCENTRATE CAP [Concomitant]
     Dosage: 1000 IU, UNK
  9. OMEPRAZOLE [Concomitant]
     Dosage: 10 MG, UNK
  10. METRONIDAZOLE [Concomitant]
     Dosage: .75 %, UNK
  11. VITAMIN A/VITAMIN C/VITAMIN E/ZINC/SELENIUM/COPPER/LUTEIN [Concomitant]
     Dosage: UNK UNK, UNK
  12. ASPIRIN [Concomitant]
     Dosage: 81 MG, UNK

REACTIONS (4)
  - INJECTION SITE ERYTHEMA [None]
  - INJECTION SITE HAEMATOMA [None]
  - INJECTION SITE PAIN [None]
  - INJECTION SITE REACTION [None]
